FAERS Safety Report 20656805 (Version 1)
Quarter: 2022Q1

REPORT INFORMATION
  Report Type: Spontaneous
  Country: US (occurrence: US)
  Receive Date: 20220331
  Receipt Date: 20220331
  Transmission Date: 20220423
  Serious: No
  Sender: FDA-Public Use
  Company Number: US-BRISTOL-MYERS SQUIBB COMPANY-2022-012936

PATIENT
  Age: 73 Year
  Sex: Male
  Weight: 65.77 kg

DRUGS (1)
  1. REVLIMID [Suspect]
     Active Substance: LENALIDOMIDE
     Indication: Plasma cell myeloma
     Dosage: 20MG DAILY FOR 1-21 DAYS EVERY 28 DAYS
     Route: 048
     Dates: start: 20201216

REACTIONS (2)
  - Platelet count decreased [Not Recovered/Not Resolved]
  - Intentional underdose [Unknown]
